FAERS Safety Report 21744021 (Version 4)
Quarter: 2023Q2

REPORT INFORMATION
  Report Type: Report from Study
  Country: BR (occurrence: BR)
  Receive Date: 20221217
  Receipt Date: 20230417
  Transmission Date: 20230722
  Serious: Yes (Other)
  Sender: FDA-Public Use
  Company Number: BR-002147023-NVSC2022BR289385

PATIENT
  Age: 49 Year
  Sex: Male

DRUGS (3)
  1. COSENTYX [Suspect]
     Active Substance: SECUKINUMAB
     Indication: Psoriasis
     Dosage: UNK, QW (ATTACK DOSE)
     Route: 065
     Dates: start: 20221209
  2. COSENTYX [Suspect]
     Active Substance: SECUKINUMAB
     Dosage: UNK (06 OR 07 MAR 2023)
     Route: 065
  3. COSENTYX [Suspect]
     Active Substance: SECUKINUMAB
     Dosage: UNK
     Route: 065
     Dates: start: 20221209

REACTIONS (14)
  - Hypertension [Recovered/Resolved]
  - Diabetes mellitus [Unknown]
  - Dizziness [Recovered/Resolved]
  - Vertigo [Recovered/Resolved]
  - Somnolence [Recovered/Resolved]
  - Illness [Recovered/Resolved]
  - Abdominal pain [Unknown]
  - Malaise [Unknown]
  - Vomiting [Recovered/Resolved]
  - Nausea [Recovered/Resolved]
  - Pyrexia [Recovered/Resolved]
  - Asthenia [Unknown]
  - Memory impairment [Not Recovered/Not Resolved]
  - Irritability [Unknown]

NARRATIVE: CASE EVENT DATE: 20221209
